FAERS Safety Report 16064561 (Version 1)
Quarter: 2019Q1

REPORT INFORMATION
  Report Type: Spontaneous
  Country: US (occurrence: US)
  Receive Date: 20190312
  Receipt Date: 20190312
  Transmission Date: 20190418
  Serious: No
  Sender: FDA-Public Use
  Company Number: US-LEO PHARMA-313338

PATIENT
  Sex: Female

DRUGS (1)
  1. SKINOREN GEL [Suspect]
     Active Substance: AZELAIC ACID
     Indication: PRODUCT USED FOR UNKNOWN INDICATION
     Dosage: 2 DF, QD

REACTIONS (5)
  - Drug ineffective [Unknown]
  - Skin disorder [Unknown]
  - Condition aggravated [Unknown]
  - Skin discolouration [Unknown]
  - Product physical issue [Unknown]
